FAERS Safety Report 5394316-2 (Version None)
Quarter: 2007Q3

REPORT INFORMATION
  Report Type: 
  Country: None (occurrence: None)
  Receive Date: 20070723
  Receipt Date: 20070523
  Transmission Date: 20080115
  Serious: No
  Sender: FDA-Public Use
  Company Number: A0652688A

PATIENT
  Age: 51 Year
  Sex: Male

DRUGS (4)
  1. AVANDIA [Suspect]
     Indication: BLOOD GLUCOSE
     Dosage: 4MG TWICE PER DAY
     Route: 048
     Dates: start: 20060101, end: 20070522
  2. LEVOXYL [Concomitant]
  3. TRICOR [Concomitant]
  4. MICARDIS [Concomitant]

REACTIONS (1)
  - BLOOD GLUCOSE INCREASED [None]
